FAERS Safety Report 7019327-2 (Version None)
Quarter: 2010Q3

REPORT INFORMATION
  Report Type: 
  Country: None (occurrence: None)
  Receive Date: 20100928
  Receipt Date: 20100915
  Transmission Date: 20110219
  Serious: No
  Sender: FDA-Public Use
  Company Number: US-BIOGENIDEC-2010BI017791

PATIENT
  Age: 20 Year
  Sex: Female

DRUGS (2)
  1. TYSABRI [Suspect]
     Indication: MULTIPLE SCLEROSIS
     Route: 042
     Dates: start: 20091102, end: 20091101
  2. TYSABRI [Suspect]
     Route: 042
     Dates: start: 20100401, end: 20100608

REACTIONS (5)
  - BURNING SENSATION [None]
  - CHEST PAIN [None]
  - FATIGUE [None]
  - HYPERSENSITIVITY [None]
  - MUSCLE TWITCHING [None]
